FAERS Safety Report 8209809-X (Version None)
Quarter: 2012Q1

REPORT INFORMATION
  Report Type: 
  Country: None (occurrence: None)
  Receive Date: 20120314
  Receipt Date: 20120223
  Transmission Date: 20120608
  Serious: No
  Sender: FDA-Public Use
  Company Number: CA-BAYER-2012-024074

PATIENT
  Sex: Male

DRUGS (2)
  1. NAPROXEN (ALEVE) [Suspect]
     Dosage: TWICE DAILY
     Route: 048
     Dates: start: 20110801, end: 20120223
  2. SYNTHROID [Concomitant]

REACTIONS (1)
  - NO ADVERSE EVENT [None]
